FAERS Safety Report 20199249 (Version 1)
Quarter: 2021Q4

REPORT INFORMATION
  Report Type: Spontaneous
  Country: US (occurrence: None)
  Receive Date: 20211216
  Receipt Date: 20211216
  Transmission Date: 20220303
  Serious: Yes (Hospitalization)
  Sender: FDA-Public Use
  Company Number: None

PATIENT
  Age: 75 Year
  Sex: Male

DRUGS (1)
  1. HYDROCHLOROTHIAZIDE [Suspect]
     Active Substance: HYDROCHLOROTHIAZIDE
     Indication: Hypertension
     Dosage: FREQUENCY : DAILY;?
     Route: 048
     Dates: start: 20170111, end: 20211029

REACTIONS (6)
  - Bradycardia [None]
  - Fatigue [None]
  - Asthenia [None]
  - Hypokalaemia [None]
  - Ventricular extrasystoles [None]
  - Therapy interrupted [None]

NARRATIVE: CASE EVENT DATE: 20211027
